FAERS Safety Report 23382687 (Version 1)
Quarter: 2024Q1

REPORT INFORMATION
  Report Type: Spontaneous
  Country: FR (occurrence: FR)
  Receive Date: 20240109
  Receipt Date: 20240109
  Transmission Date: 20240409
  Serious: Yes (Death)
  Sender: FDA-Public Use
  Company Number: None

PATIENT
  Age: 65 Year
  Sex: Male

DRUGS (1)
  1. SPIRONOLACTONE [Suspect]
     Active Substance: SPIRONOLACTONE
     Indication: Cirrhosis alcoholic
     Dosage: 225 MG, 1X/DAY
     Route: 048
     Dates: start: 20231015, end: 20231121

REACTIONS (2)
  - Dermatitis bullous [Fatal]
  - Toxic skin eruption [Fatal]

NARRATIVE: CASE EVENT DATE: 20231107
